FAERS Safety Report 21050422 (Version 1)
Quarter: 2022Q3

REPORT INFORMATION
  Report Type: Spontaneous
  Country: US (occurrence: US)
  Receive Date: 20220707
  Receipt Date: 20220707
  Transmission Date: 20221026
  Serious: Yes (Other)
  Sender: FDA-Public Use
  Company Number: US-STRIDES ARCOLAB LIMITED-2022SP005829

PATIENT
  Age: 78 Year
  Sex: Female

DRUGS (8)
  1. OXYBUTYNIN [Suspect]
     Active Substance: OXYBUTYNIN
     Indication: Eosinophilic cystitis
     Dosage: UNK
     Route: 065
  2. CYCLOSPORINE [Suspect]
     Active Substance: CYCLOSPORINE
     Indication: Eosinophilic cystitis
     Dosage: 25 MILLIGRAM, BID
     Route: 065
  3. CYCLOSPORINE [Suspect]
     Active Substance: CYCLOSPORINE
     Dosage: 50 MILLIGRAM, TID, TITRATING UP TO 50 MG THREE TIMES DAILY (~2.3 MG/KG/DAY).
     Route: 065
  4. LORATADINE [Suspect]
     Active Substance: LORATADINE
     Indication: Eosinophilic cystitis
     Dosage: UNK
     Route: 065
  5. TAMSULOSIN [Suspect]
     Active Substance: TAMSULOSIN
     Indication: Eosinophilic cystitis
     Dosage: UNK
     Route: 065
  6. TRIAMCINOLONE [Suspect]
     Active Substance: TRIAMCINOLONE
     Indication: Eosinophilic cystitis
     Dosage: UNK, TRIAMCINOLONE INJECTIONS INTO THE BLADDER LESIONS
  7. MIRABEGRON [Suspect]
     Active Substance: MIRABEGRON
     Indication: Eosinophilic cystitis
     Dosage: UNK
     Route: 065
  8. ESTROGENS [Suspect]
     Active Substance: ESTROGENS
     Indication: Eosinophilic cystitis
     Dosage: UNK
     Route: 067

REACTIONS (2)
  - Therapy partial responder [Unknown]
  - Off label use [Unknown]
